FAERS Safety Report 5343545-2 (Version None)
Quarter: 2007Q2

REPORT INFORMATION
  Report Type: 
  Country: None (occurrence: None)
  Receive Date: 20070416
  Receipt Date: 20070125
  Transmission Date: 20071010
  Serious: No
  Sender: FDA-Public Use
  Company Number: 2007SP000293

PATIENT
  Age: 73 Year
  Sex: Female
  Weight: 97.5234 kg

DRUGS (5)
  1. LUNESTA [Suspect]
     Indication: INSOMNIA
     Dosage: 3 MG; PRN; ORAL
     Route: 048
     Dates: start: 20060101, end: 20070101
  2. PROPAFENONE HCL [Concomitant]
  3. LOPRESSOR [Concomitant]
  4. VALSARTAN [Concomitant]
  5. MULTIVITAMIN [Concomitant]

REACTIONS (2)
  - DYSGEUSIA [None]
  - MIDDLE INSOMNIA [None]
